FAERS Safety Report 9669698 (Version 2)
Quarter: 2013Q4

REPORT INFORMATION
  Report Type: Report from Study
  Country: US (occurrence: US)
  Receive Date: 20131105
  Receipt Date: 20131121
  Transmission Date: 20140711
  Serious: Yes (Hospitalization)
  Sender: FDA-Public Use
  Company Number: US-JNJFOC-20131017833

PATIENT
  Age: 16 Year
  Sex: Male
  Weight: 87.1 kg

DRUGS (7)
  1. REMICADE [Suspect]
     Indication: CROHN^S DISEASE
     Route: 042
     Dates: start: 20120425
  2. CALCIUM CARBONATE [Concomitant]
     Route: 065
  3. VITAMIN D3 [Concomitant]
     Route: 065
  4. FERROUS SULPHATE [Concomitant]
     Route: 065
  5. MULTIVITAMINS [Concomitant]
     Route: 065
  6. ONDANSETRON [Concomitant]
     Route: 065
  7. MIRALAX [Concomitant]
     Route: 065

REACTIONS (1)
  - Small intestinal perforation [Recovered/Resolved]
